FAERS Safety Report 6411981-9 (Version None)
Quarter: 2009Q4

REPORT INFORMATION
  Report Type: 
  Country: None (occurrence: None)
  Receive Date: 20091023
  Receipt Date: 20091015
  Transmission Date: 20100525
  Serious: Yes (Other)
  Sender: FDA-Public Use
  Company Number: JP-JNJFOC-20091005353

PATIENT

DRUGS (2)
  1. RISPERDAL [Suspect]
     Indication: AUTISM
     Route: 048
  2. VALPROATE SODIUM [Concomitant]
     Route: 048

REACTIONS (1)
  - BLOOD URIC ACID INCREASED [None]
